FAERS Safety Report 8578130-2 (Version None)
Quarter: 2012Q3

REPORT INFORMATION
  Report Type: 
  Country: None (occurrence: None)
  Receive Date: 20120808
  Receipt Date: 20120726
  Transmission Date: 20120928
  Serious: Yes (Other)
  Sender: FDA-Public Use
  Company Number: IT-BAYER-2012-079598

PATIENT
  Age: 35 Year
  Sex: Male

DRUGS (2)
  1. INTERFERON BETA-1B [Suspect]
     Dosage: 22 ?G, TIW
     Route: 058
  2. INTERFERON BETA-1B [Suspect]
     Indication: MULTIPLE SCLEROSIS
     Dosage: 22 ?G, TIW
     Route: 058

REACTIONS (17)
  - MULTIPLE SCLEROSIS RELAPSE [None]
  - COUGH [None]
  - ALANINE AMINOTRANSFERASE INCREASED [None]
  - ABDOMINAL PAIN UPPER [None]
  - HYPERGAMMAGLOBULINAEMIA [None]
  - HEPATOSPLENOMEGALY [None]
  - HILAR LYMPHADENOPATHY [None]
  - LUNG DISORDER [None]
  - ASPARTATE AMINOTRANSFERASE INCREASED [None]
  - HYPERCALCIURIA [None]
  - PARATRACHEAL LYMPHADENOPATHY [None]
  - GRANULOMA [None]
  - SARCOIDOSIS [None]
  - TOXICITY TO VARIOUS AGENTS [None]
  - OPTIC NEURITIS [None]
  - DYSPNOEA [None]
  - HYPOALBUMINAEMIA [None]
